FAERS Safety Report 6753957-8 (Version None)
Quarter: 2010Q2

REPORT INFORMATION
  Report Type: 
  Country: None (occurrence: None)
  Receive Date: 20100603
  Receipt Date: 20100527
  Transmission Date: 20101027
  Serious: Yes (Other)
  Sender: FDA-Public Use
  Company Number: A0861705A

PATIENT
  Age: 65 Year
  Sex: Female

DRUGS (5)
  1. ADVAIR DISKUS 100/50 [Suspect]
     Indication: CHRONIC OBSTRUCTIVE PULMONARY DISEASE
     Dosage: 1PUFF TWICE PER DAY
     Route: 055
     Dates: start: 20100505
  2. PLAVIX [Concomitant]
  3. TOPROL-XL [Concomitant]
  4. TRAZODONE HCL [Concomitant]
  5. XALATAN [Concomitant]

REACTIONS (7)
  - CHEST DISCOMFORT [None]
  - COORDINATION ABNORMAL [None]
  - DISORIENTATION [None]
  - INTRAOCULAR PRESSURE INCREASED [None]
  - MOTOR DYSFUNCTION [None]
  - OROPHARYNGITIS FUNGAL [None]
  - VULVOVAGINAL MYCOTIC INFECTION [None]
